FAERS Safety Report 6642334-6 (Version None)
Quarter: 2010Q1

REPORT INFORMATION
  Report Type: 
  Country: None (occurrence: None)
  Receive Date: 20100319
  Receipt Date: 20100317
  Transmission Date: 20100710
  Serious: Yes (Hospitalization, Other)
  Sender: FDA-Public Use
  Company Number: AU-ROCHE-644651

PATIENT
  Sex: Female
  Weight: 91.6 kg

DRUGS (11)
  1. BLINDED BEVACIZUMAB [Suspect]
     Indication: DIFFUSE LARGE B-CELL LYMPHOMA
     Dosage: DOSE BLINDED. LAST DOSE PRIOR TO SAE: 07 JULY 2010. PERMANENTLY DISCONTINUED
     Route: 042
     Dates: start: 20090427, end: 20090714
  2. RITUXIMAB [Suspect]
     Indication: DIFFUSE LARGE B-CELL LYMPHOMA
     Dosage: LAST DOSE PRIOR TO SAE: 07 JULY 2009. PERMANENTLY DISCONTINUED.
     Route: 042
     Dates: start: 20090428, end: 20090714
  3. CYCLOPHOSPHAMIDE [Suspect]
     Indication: DIFFUSE LARGE B-CELL LYMPHOMA
     Dosage: LAST DOSE PRIOR TO SAE: 07 JULY 2009. PERMANENTLY DISCONTINUED
     Route: 042
     Dates: start: 20090428, end: 20090714
  4. DOXORUBICIN [Suspect]
     Indication: DIFFUSE LARGE B-CELL LYMPHOMA
     Dosage: LAST DOSE PRIOR TO SAE: 07 JULY 2010. THERAPY PERMANENTLY DISCONTINUED.
     Route: 042
     Dates: start: 20090428, end: 20090714
  5. VINCRISTINE [Suspect]
     Indication: DIFFUSE LARGE B-CELL LYMPHOMA
     Dosage: LAST DOSE PRIOR TO SAE: 07 JULY 2010. PERMANENTLY DISCONTINUED.
     Route: 042
     Dates: start: 20090428, end: 20090714
  6. PREDNISOLON [Suspect]
     Indication: DIFFUSE LARGE B-CELL LYMPHOMA
     Dosage: FREQUENCY: DAY 1,2,3,4,5, EVERY 21 DAY. DRUG: PREDNISOLONE. LAST DOSE PRIOR TO SAE: 11 JULY 2010.
     Route: 048
     Dates: start: 20090428, end: 20090714
  7. OSTEVIT-D [Concomitant]
  8. PANADOL OSTEO [Concomitant]
  9. PREDNISOLON [Concomitant]
     Dosage: DRUG: PREDNISOLONE
  10. FLUCONAZOLE [Concomitant]
     Dates: start: 20090501
  11. FAMVIR [Concomitant]
     Dates: start: 20090501

REACTIONS (2)
  - CONGESTIVE CARDIOMYOPATHY [None]
  - MULTIPLE GATED ACQUISITION SCAN ABNORMAL [None]
